FAERS Safety Report 16223479 (Version 1)
Quarter: 2019Q2

REPORT INFORMATION
  Report Type: Spontaneous
  Country: US (occurrence: US)
  Receive Date: 20190320
  Receipt Date: 20190320
  Transmission Date: 20190711
  Serious: No
  Sender: FDA-Public Use
  Company Number: None

PATIENT
  Age: 58 Year
  Sex: Female

DRUGS (1)
  1. STELARA [Suspect]
     Active Substance: USTEKINUMAB
     Indication: RHEUMATOID ARTHRITIS
     Dosage: ?          OTHER DOSE:45MG/0.5ML;OTHER FREQUENCY:EVERY 12 WEEKS;?
     Route: 058
     Dates: start: 20190204, end: 201903

REACTIONS (1)
  - Rash [None]

NARRATIVE: CASE EVENT DATE: 20190319
